FAERS Safety Report 12810809 (Version 1)
Quarter: 2016Q4

REPORT INFORMATION
  Report Type: Spontaneous
  Country: US (occurrence: US)
  Receive Date: 20161005
  Receipt Date: 20161005
  Transmission Date: 20170207
  Serious: No
  Sender: FDA-Public Use
  Company Number: None

PATIENT
  Age: 73 Year
  Sex: Female
  Weight: 90.72 kg

DRUGS (9)
  1. FISH OIL [Concomitant]
     Active Substance: FISH OIL
  2. VITAMIN D [Concomitant]
     Active Substance: CHOLECALCIFEROL
  3. ZYRTEC [Concomitant]
     Active Substance: CETIRIZINE HYDROCHLORIDE
  4. MULTIVITAMINS [Concomitant]
     Active Substance: VITAMINS
  5. ARIMIDEX [Suspect]
     Active Substance: ANASTROZOLE
     Indication: BREAST CANCER
     Dosage: ARIMIDEX-ANASTROZOLE 1 MG - 1 PILL EVERY DAY FOR 5 YEARS
     Route: 048
  6. PRILOSEC [Concomitant]
     Active Substance: OMEPRAZOLE MAGNESIUM
  7. MOTRIN [Concomitant]
     Active Substance: IBUPROFEN
  8. FEMARA [Suspect]
     Active Substance: LETROZOLE
     Indication: BREAST CANCER
     Dosage: FEMARA-LETROZOLE 2.5 MG - 1 PILL EVERY DAY FOR 5 YEARS
     Route: 048
  9. CALCIUM [Concomitant]
     Active Substance: CALCIUM

REACTIONS (8)
  - Bone pain [None]
  - Pain in extremity [None]
  - Fatigue [None]
  - Musculoskeletal pain [None]
  - Balance disorder [None]
  - Drug ineffective [None]
  - Amnesia [None]
  - Arthralgia [None]

NARRATIVE: CASE EVENT DATE: 20151030
